FAERS Safety Report 21744166 (Version 1)
Quarter: 2022Q4

REPORT INFORMATION
  Report Type: Spontaneous
  Country: NL (occurrence: NL)
  Receive Date: 20221218
  Receipt Date: 20221218
  Transmission Date: 20230113
  Serious: Yes (Disabling)
  Sender: FDA-Public Use
  Company Number: NL-LRB-00854287

PATIENT
  Sex: Female
  Weight: 70 kg

DRUGS (1)
  1. NITROFURANTOIN [Suspect]
     Active Substance: NITROFURANTOIN
     Indication: Urinary tract infection
     Dosage: 50 MILLIGRAM, FOUR TIMES/DAY (1 PIECE 4 TIMES A DAY)
     Route: 065
     Dates: start: 20220920, end: 20220926

REACTIONS (1)
  - Hypoacusis [Not Recovered/Not Resolved]
